FAERS Safety Report 10023381 (Version 1)
Quarter: 2014Q1

REPORT INFORMATION
  Report Type: Spontaneous
  Country: AU (occurrence: AU)
  Receive Date: 20140320
  Receipt Date: 20140320
  Transmission Date: 20141002
  Serious: No
  Sender: FDA-Public Use
  Company Number: AU-009507513-1403AUS007974

PATIENT
  Sex: Female

DRUGS (1)
  1. NOVASONE [Suspect]
     Dosage: NOVASONE LOTION FOR HER SCALP BUT INADVERTENTLY ADMINISTERED IT INTRANASALLY
     Route: 045

REACTIONS (1)
  - Incorrect route of drug administration [Unknown]
